FAERS Safety Report 16920070 (Version 1)
Quarter: 2019Q4

REPORT INFORMATION
  Report Type: Other
  Country: ES (occurrence: ES)
  Receive Date: 20191015
  Receipt Date: 20191015
  Transmission Date: 20200122
  Serious: Yes (Other)
  Sender: FDA-Public Use
  Company Number: ES-COLLEGIUM PHARMACEUTICAL, INC.-ES-2019COL001206

PATIENT
  Age: 36 Year
  Sex: Male

DRUGS (1)
  1. TAPENTADOL EXTENDED RELEASE [Suspect]
     Active Substance: TAPENTADOL
     Indication: ARTHRALGIA
     Dosage: UNK
     Dates: start: 20190705

REACTIONS (2)
  - Malaise [Unknown]
  - Dysarthria [Unknown]

NARRATIVE: CASE EVENT DATE: 201907
